FAERS Safety Report 19987275 (Version 3)
Quarter: 2023Q1

REPORT INFORMATION
  Report Type: Spontaneous
  Country: US (occurrence: US)
  Receive Date: 20211022
  Receipt Date: 20230127
  Transmission Date: 20230417
  Serious: Yes (Other)
  Sender: FDA-Public Use
  Company Number: US-PFIZER INC-202101407929

PATIENT
  Age: 66 Year
  Sex: Female

DRUGS (1)
  1. XELJANZ XR [Suspect]
     Active Substance: TOFACITINIB CITRATE
     Dosage: 11 MG

REACTIONS (3)
  - Macular degeneration [Unknown]
  - Blindness [Unknown]
  - Visual impairment [Unknown]
